FAERS Safety Report 9218153 (Version 5)
Quarter: 2014Q2

REPORT INFORMATION
  Report Type: Spontaneous
  Country: US (occurrence: US)
  Receive Date: 20130408
  Receipt Date: 20140519
  Transmission Date: 20141212
  Serious: Yes (Disabling)
  Sender: FDA-Public Use
  Company Number: US-009507513-1304USA002758

PATIENT
  Sex: Male

DRUGS (1)
  1. PROPECIA [Suspect]
     Indication: ANDROGENETIC ALOPECIA
     Dosage: 1 MG, UNK
     Route: 048
     Dates: start: 20030809, end: 200805

REACTIONS (17)
  - Sexual dysfunction [Not Recovered/Not Resolved]
  - Erectile dysfunction [Not Recovered/Not Resolved]
  - Libido decreased [Not Recovered/Not Resolved]
  - Ejaculation disorder [Not Recovered/Not Resolved]
  - Semen volume decreased [Not Recovered/Not Resolved]
  - Anxiety [Not Recovered/Not Resolved]
  - Subcutaneous abscess [Unknown]
  - Cellulitis [Unknown]
  - Scrotal mass [Unknown]
  - Dermatitis atopic [Unknown]
  - Essential hypertension [Unknown]
  - Varicose vein [Unknown]
  - Peripheral swelling [Unknown]
  - Skin lesion [Unknown]
  - Scratch [Unknown]
  - Anal fistula [Unknown]
  - Perirectal abscess [Unknown]
